FAERS Safety Report 5658554-3 (Version None)
Quarter: 2008Q1

REPORT INFORMATION
  Report Type: 
  Country: None (occurrence: None)
  Receive Date: 20080310
  Receipt Date: 20070306
  Transmission Date: 20080703
  Serious: No
  Sender: FDA-Public Use
  Company Number: US-BAYER-200710711BCC

PATIENT
  Age: 14 Month
  Sex: Female
  Weight: 9.072 kg

DRUGS (2)
  1. ALEVE [Suspect]
     Indication: ACCIDENTAL EXPOSURE
     Route: 048
     Dates: start: 20070306
  2. ANTIBIOTIC [Concomitant]
     Indication: UPPER RESPIRATORY TRACT INFECTION
     Dates: end: 20070301

REACTIONS (2)
  - ACCIDENTAL EXPOSURE [None]
  - INCORRECT ROUTE OF DRUG ADMINISTRATION [None]
